FAERS Safety Report 15125546 (Version 3)
Quarter: 2018Q3

REPORT INFORMATION
  Report Type: Report from Study
  Country: IE (occurrence: IE)
  Receive Date: 20180710
  Receipt Date: 20180918
  Transmission Date: 20181010
  Serious: Yes (Hospitalization)
  Sender: FDA-Public Use
  Company Number: IE-JNJFOC-20180625633

PATIENT
  Age: 76 Year
  Sex: Male

DRUGS (10)
  1. WARFARIN [Concomitant]
     Active Substance: WARFARIN
     Indication: PRODUCT USED FOR UNKNOWN INDICATION
     Dosage: 3 MG FOR 2 DAYS AND 1 MG FOR 1 DAY (ALTERNATIVELY)
     Route: 065
  2. BETAHISTINE [Concomitant]
     Active Substance: BETAHISTINE
     Route: 050
  3. PREDNISOLONE. [Concomitant]
     Active Substance: PREDNISOLONE
     Route: 050
  4. BISOPROLOL [Concomitant]
     Active Substance: BISOPROLOL
     Route: 050
  5. IXPRIM [Concomitant]
     Active Substance: ACETAMINOPHEN\TRAMADOL HYDROCHLORIDE
     Route: 065
  6. LANSOPRAZOLE. [Concomitant]
     Active Substance: LANSOPRAZOLE
     Route: 050
  7. ROSUVASTATIN. [Concomitant]
     Active Substance: ROSUVASTATIN
     Route: 050
  8. ZYTIGA [Suspect]
     Active Substance: ABIRATERONE ACETATE
     Indication: PROSTATE CANCER METASTATIC
     Route: 048
     Dates: start: 20180430
  9. SILODOSIN [Concomitant]
     Active Substance: SILODOSIN
     Route: 050
  10. LERCANIDIPINE [Concomitant]
     Active Substance: LERCANIDIPINE
     Route: 050

REACTIONS (6)
  - Urinary retention [Recovered/Resolved]
  - Hypertension [Not Recovered/Not Resolved]
  - Heart rate decreased [Not Recovered/Not Resolved]
  - Urinary tract disorder [Not Recovered/Not Resolved]
  - Haematuria [Recovered/Resolved]
  - Urinary tract infection [Recovered/Resolved]

NARRATIVE: CASE EVENT DATE: 20180618
